FAERS Safety Report 14505593 (Version 1)
Quarter: 2018Q1

REPORT INFORMATION
  Report Type: Spontaneous
  Country: US (occurrence: US)
  Receive Date: 20180208
  Receipt Date: 20180208
  Transmission Date: 20180509
  Serious: Yes (Death, Other)
  Sender: FDA-Public Use
  Company Number: US-PFIZER INC-2018044481

PATIENT
  Age: 71 Year
  Sex: Male

DRUGS (2)
  1. ESTROGENS CONJUGATED [Suspect]
     Active Substance: ESTROGENS, CONJUGATED
     Indication: FEMINISATION ACQUIRED
  2. ESTROGENS CONJUGATED [Suspect]
     Active Substance: ESTROGENS, CONJUGATED
     Indication: TRANSGENDER HORMONAL THERAPY
     Dosage: UNK (UNKNOWN DOSE; 7 YEARS [FROM VA])
     Route: 065

REACTIONS (1)
  - Breast cancer metastatic [Fatal]
